FAERS Safety Report 24235139 (Version 2)
Quarter: 2024Q3

REPORT INFORMATION
  Report Type: Spontaneous
  Country: US (occurrence: US)
  Receive Date: 20240821
  Receipt Date: 20240905
  Transmission Date: 20241016
  Serious: Yes (Life-Threatening, Hospitalization)
  Sender: TEVA
  Company Number: US-TEVA-VS-3234737

PATIENT
  Age: 41 Year
  Sex: Male

DRUGS (1)
  1. HYDROMORPHONE [Suspect]
     Active Substance: HYDROMORPHONE
     Indication: Drug withdrawal syndrome
     Dosage: ADMINISTERED AS NEEDED
     Route: 042

REACTIONS (1)
  - Drug ineffective [Unknown]
